FAERS Safety Report 20583965 (Version 9)
Quarter: 2024Q2

REPORT INFORMATION
  Report Type: Spontaneous
  Country: US (occurrence: US)
  Receive Date: 20220311
  Receipt Date: 20240528
  Transmission Date: 20240716
  Serious: Yes (Other)
  Sender: FDA-Public Use
  Company Number: US-SA-SAC20220309001294

PATIENT
  Age: 44 Year
  Sex: Male

DRUGS (12)
  1. ALPROLIX [Suspect]
     Active Substance: EFTRENONACOG ALFA
     Indication: Factor IX deficiency
     Dosage: 8700 U (8265-9135), PRN (AS NEEDED FOR BLEEDING)
     Route: 042
     Dates: start: 202107
  2. ALPROLIX [Suspect]
     Active Substance: EFTRENONACOG ALFA
     Indication: Factor IX deficiency
     Dosage: 8700 U (8265-9135), PRN (AS NEEDED FOR BLEEDING)
     Route: 042
     Dates: start: 202107
  3. ALPROLIX [Suspect]
     Active Substance: EFTRENONACOG ALFA
     Dosage: 8700 U (8265-9135), QOW
     Route: 042
     Dates: start: 202107
  4. ALPROLIX [Suspect]
     Active Substance: EFTRENONACOG ALFA
     Dosage: 8700 U (8265-9135), QOW
     Route: 042
     Dates: start: 202107
  5. ALPROLIX [Suspect]
     Active Substance: EFTRENONACOG ALFA
     Dosage: 4000 U, QOW
     Route: 042
     Dates: start: 202303
  6. ALPROLIX [Suspect]
     Active Substance: EFTRENONACOG ALFA
     Dosage: 4000 U, QOW
     Route: 042
     Dates: start: 202303
  7. ALPROLIX [Suspect]
     Active Substance: EFTRENONACOG ALFA
     Dosage: 1700 U, QOW
     Route: 042
     Dates: start: 202303
  8. ALPROLIX [Suspect]
     Active Substance: EFTRENONACOG ALFA
     Dosage: 1700 U, QOW
     Route: 042
     Dates: start: 202303
  9. ALPROLIX [Suspect]
     Active Substance: EFTRENONACOG ALFA
     Dosage: 3000 U, QOW
     Route: 042
  10. ALPROLIX [Suspect]
     Active Substance: EFTRENONACOG ALFA
     Dosage: 3000 U, QOW
     Route: 042
  11. ALPROLIX [Suspect]
     Active Substance: EFTRENONACOG ALFA
     Dosage: 8700 U, QOW
     Route: 042
     Dates: start: 20230621
  12. ALPROLIX [Suspect]
     Active Substance: EFTRENONACOG ALFA
     Dosage: 8700 U, QOW
     Route: 042
     Dates: start: 20230621

REACTIONS (9)
  - Haemorrhage [Unknown]
  - Haemorrhage [Unknown]
  - Haemorrhage [Recovered/Resolved]
  - Traumatic haemorrhage [Unknown]
  - Traumatic haemorrhage [Not Recovered/Not Resolved]
  - Haemorrhage [Recovered/Resolved]
  - Haemorrhage [Recovered/Resolved]
  - Joint swelling [Unknown]
  - Arthralgia [Unknown]

NARRATIVE: CASE EVENT DATE: 20230101
